FAERS Safety Report 9242593 (Version 1)
Quarter: 2013Q2

REPORT INFORMATION
  Report Type: Spontaneous
  Country: US (occurrence: US)
  Receive Date: 20130419
  Receipt Date: 20130419
  Transmission Date: 20140414
  Serious: Yes (Other)
  Sender: FDA-Public Use
  Company Number: US-JNJFOC-20130404428

PATIENT
  Sex: Male

DRUGS (1)
  1. RISPERDAL [Suspect]
     Indication: PRODUCT USED FOR UNKNOWN INDICATION
     Route: 065
     Dates: start: 2008

REACTIONS (5)
  - Type 2 diabetes mellitus [Recovered/Resolved]
  - Psychotic disorder [Recovered/Resolved]
  - Hyperlipidaemia [Recovered/Resolved]
  - Erectile dysfunction [Recovered/Resolved]
  - Gynaecomastia [Recovered/Resolved]
